FAERS Safety Report 8983895 (Version 1)
Quarter: 2012Q4

REPORT INFORMATION
  Report Type: 
  Country: AU (occurrence: AU)
  Receive Date: 20121224
  Receipt Date: 20121224
  Transmission Date: 20130627
  Serious: Yes (Other)
  Sender: FDA-Public Use
  Company Number: AU-ROCHE-1173016

PATIENT

DRUGS (2)
  1. ZELBORAF [Suspect]
     Indication: PRODUCT USED FOR UNKNOWN INDICATION
     Route: 065
     Dates: end: 20120621
  2. RADIATION THERAPY [Concomitant]

REACTIONS (3)
  - Cognitive disorder [Unknown]
  - Gait disturbance [Unknown]
  - Metastases to central nervous system [Unknown]
